FAERS Safety Report 9605466 (Version 1)
Quarter: 2013Q4

REPORT INFORMATION
  Report Type: Spontaneous
  Country: GB (occurrence: GB)
  Receive Date: 20131008
  Receipt Date: 20131008
  Transmission Date: 20140711
  Serious: Yes (Other)
  Sender: FDA-Public Use
  Company Number: GB-ASTRAZENECA-2013SE73074

PATIENT
  Sex: Female

DRUGS (2)
  1. ZOLADEX [Suspect]
     Indication: BREAST CANCER
     Route: 058
     Dates: start: 20130927
  2. ZOLADEX [Suspect]
     Indication: BREAST CANCER
     Route: 058

REACTIONS (2)
  - Neoplasm malignant [Unknown]
  - Incorrect dose administered [Unknown]
